FAERS Safety Report 8251305-8 (Version None)
Quarter: 2012Q2

REPORT INFORMATION
  Report Type: 
  Country: None (occurrence: None)
  Receive Date: 20120402
  Receipt Date: 20120327
  Transmission Date: 20120825
  Serious: Yes (Hospitalization)
  Sender: FDA-Public Use
  Company Number: US-GLAXOSMITHKLINE-A0915622A

PATIENT
  Age: 68 Year
  Sex: Male
  Weight: 126.8 kg

DRUGS (8)
  1. ACTOS [Concomitant]
     Dates: start: 20040212
  2. ACCUPRIL [Concomitant]
  3. INSULIN [Concomitant]
  4. LOTREL [Concomitant]
  5. HYDROCHLOROTHIAZIDE [Concomitant]
  6. AVANDIA [Suspect]
     Indication: DIABETES MELLITUS
     Dosage: 4MG PER DAY
     Route: 048
     Dates: start: 20000301, end: 20040212
  7. VIOXX [Concomitant]
  8. FLOMAX [Concomitant]

REACTIONS (4)
  - CORONARY ARTERY DISEASE [None]
  - ANGINA UNSTABLE [None]
  - CARDIAC DISORDER [None]
  - CARDIOVASCULAR DISORDER [None]
